FAERS Safety Report 8393442-3 (Version None)
Quarter: 2012Q2

REPORT INFORMATION
  Report Type: 
  Country: None (occurrence: None)
  Receive Date: 20120529
  Receipt Date: 20120503
  Transmission Date: 20120825
  Serious: Yes (Other)
  Sender: FDA-Public Use
  Company Number: CHPA2012US006177

PATIENT
  Age: 70 Year
  Sex: Male

DRUGS (2)
  1. VOLTAREN [Suspect]
     Indication: ARTHRALGIA
     Dosage: UNK, UNK
     Route: 061
     Dates: start: 20120402
  2. VOLTAREN [Suspect]
     Dosage: TABLESPOON PER KNEE, QD
     Route: 061
     Dates: start: 20110701, end: 20111101

REACTIONS (4)
  - OFF LABEL USE [None]
  - WRONG TECHNIQUE IN DRUG USAGE PROCESS [None]
  - THROMBOSIS [None]
  - THERAPEUTIC RESPONSE UNEXPECTED [None]
